FAERS Safety Report 4927198-0 (Version None)
Quarter: 2006Q1

REPORT INFORMATION
  Report Type: 
  Country: None (occurrence: None)
  Receive Date: 20060228
  Receipt Date: 20050114
  Transmission Date: 20060701
  Serious: Yes (Disabling)
  Sender: FDA-Public Use
  Company Number: US-GLAXOSMITHKLINE-A0540936A

PATIENT
  Age: 52 Year
  Sex: Female
  Weight: 51.8 kg

DRUGS (2)
  1. IMITREX [Suspect]
     Indication: MIGRAINE
     Route: 058
  2. IMITREX [Suspect]
     Route: 048

REACTIONS (2)
  - DEAFNESS UNILATERAL [None]
  - TINNITUS [None]
